FAERS Safety Report 4505057-5 (Version None)
Quarter: 2004Q4

REPORT INFORMATION
  Report Type: 
  Country: None (occurrence: None)
  Receive Date: 20041116
  Receipt Date: 20041102
  Transmission Date: 20050328
  Serious: Yes (Life-Threatening, Hospitalization)
  Sender: FDA-Public Use
  Company Number: 2004242085HR

PATIENT
  Age: 38 Year
  Sex: Female

DRUGS (3)
  1. TRELSTAR DEPOT [Suspect]
     Indication: IN VITRO FERTILISATION
     Dosage: INTRAMUSCULAR
     Route: 030
  2. METRODIN (UROFOLLITROPIN) [Suspect]
     Indication: IN VITRO FERTILISATION
     Dosage: SEE IMAGE
     Route: 030
  3. GONADOTROPIN CHORIONIC (CHORIONIC GONADOTROPHIN) [Concomitant]

REACTIONS (17)
  - ABDOMINAL PAIN LOWER [None]
  - ALANINE AMINOTRANSFERASE INCREASED [None]
  - ANURIA [None]
  - ASPARTATE AMINOTRANSFERASE INCREASED [None]
  - BLOOD BILIRUBIN INCREASED [None]
  - CAESAREAN SECTION [None]
  - DOUGLAS' POUCH EFFUSION [None]
  - DRUG EXPOSURE DURING PREGNANCY [None]
  - DYSPNOEA [None]
  - GENERAL PHYSICAL HEALTH DETERIORATION [None]
  - HAEMOCONCENTRATION [None]
  - HYPOTENSION [None]
  - LEUKOCYTOSIS [None]
  - OVARIAN HYPERSTIMULATION SYNDROME [None]
  - PLEURAL EFFUSION [None]
  - POST PROCEDURAL COMPLICATION [None]
  - TACHYCARDIA [None]
